FAERS Safety Report 14612313 (Version 1)
Quarter: 2018Q1

REPORT INFORMATION
  Report Type: Spontaneous
  Country: US (occurrence: US)
  Receive Date: 20180308
  Receipt Date: 20180308
  Transmission Date: 20180509
  Serious: Yes (Death, Hospitalization, Other)
  Sender: FDA-Public Use
  Company Number: US-CIPLA LTD.-2018US09957

PATIENT

DRUGS (6)
  1. CHLOROQUINE. [Suspect]
     Active Substance: CHLOROQUINE
     Indication: HYPERCALCAEMIA
     Dosage: 250 MG, DAILY
     Route: 048
  2. PREDNISONE                         /00044702/ [Suspect]
     Active Substance: PREDNISONE
     Indication: HYPERCALCAEMIA
     Dosage: 30 MG, PER DAY
     Route: 048
  3. SEVELAMER [Suspect]
     Active Substance: SEVELAMER
     Indication: HYPERCALCAEMIA
     Dosage: 800 MG, DAILY
     Route: 048
  4. FUROSEMIDE. [Suspect]
     Active Substance: FUROSEMIDE
     Indication: PRODUCT USED FOR UNKNOWN INDICATION
     Dosage: UNK
     Route: 042
  5. PREDNISOLONE. [Suspect]
     Active Substance: PREDNISOLONE
     Indication: HYPERCALCAEMIA
     Dosage: 5 MG, DAILY
     Route: 065
  6. ZOLEDRONIC ACID [Suspect]
     Active Substance: ZOLEDRONIC ACID
     Indication: HYPERCALCAEMIA
     Dosage: 4 MG, UNK
     Route: 042

REACTIONS (3)
  - Hypercalcaemia [Fatal]
  - Acute kidney injury [Unknown]
  - Therapy non-responder [Unknown]
